FAERS Safety Report 4848170-5 (Version None)
Quarter: 2005Q4

REPORT INFORMATION
  Report Type: 
  Country: None (occurrence: None)
  Receive Date: 20051208
  Receipt Date: 20051130
  Transmission Date: 20060501
  Serious: Yes (Hospitalization)
  Sender: FDA-Public Use
  Company Number: NO-SANOFI-SYNTHELABO-A01200508386

PATIENT
  Sex: Female

DRUGS (2)
  1. PLAQUENIL [Suspect]
     Dosage: 2X200MG
     Route: 048
     Dates: start: 20051025, end: 20051104
  2. BRUFEN [Concomitant]

REACTIONS (4)
  - DIZZINESS [None]
  - ERYTHEMA MULTIFORME [None]
  - HEADACHE [None]
  - NAUSEA [None]
